FAERS Safety Report 9135611 (Version 1)
Quarter: 2013Q1

REPORT INFORMATION
  Report Type: Spontaneous
  Country: US (occurrence: US)
  Receive Date: 20130219
  Receipt Date: 20130219
  Transmission Date: 20140127
  Serious: No
  Sender: FDA-Public Use
  Company Number: US-BRISTOL-MYERS SQUIBB COMPANY-16775744

PATIENT
  Age: 69 Year
  Sex: Male
  Weight: 82.54 kg

DRUGS (6)
  1. ORENCIA [Suspect]
     Indication: RHEUMATOID ARTHRITIS
     Dosage: LAST INFUSION 19JUN12
     Route: 042
     Dates: start: 201205
  2. KEPPRA [Concomitant]
  3. METOPROLOL [Concomitant]
     Dosage: STRENGTH:12.5MG
  4. VIMPAT [Concomitant]
  5. ENALAPRIL [Concomitant]
  6. LEFLUNOMIDE [Concomitant]

REACTIONS (3)
  - Contusion [Recovered/Resolved]
  - Swelling [Unknown]
  - Pruritus [Unknown]
